FAERS Safety Report 25069787 (Version 2)
Quarter: 2025Q2

REPORT INFORMATION
  Report Type: Spontaneous
  Country: US (occurrence: US)
  Receive Date: 20250312
  Receipt Date: 20250516
  Transmission Date: 20250716
  Serious: Yes (Hospitalization)
  Sender: SK LIFE SCIENCE
  Company Number: US-SK LIFE SCIENCE, INC.-SKPVG-2025-000444

PATIENT

DRUGS (8)
  1. XCOPRI [Suspect]
     Active Substance: CENOBAMATE
     Indication: Epilepsy
     Route: 065
  2. XCOPRI [Suspect]
     Active Substance: CENOBAMATE
     Route: 065
     Dates: start: 20220413, end: 20220516
  3. XCOPRI [Suspect]
     Active Substance: CENOBAMATE
     Route: 065
     Dates: start: 20220516, end: 20220822
  4. XCOPRI [Suspect]
     Active Substance: CENOBAMATE
     Route: 065
  5. XCOPRI [Suspect]
     Active Substance: CENOBAMATE
     Route: 065
     Dates: start: 20221104, end: 20230126
  6. XCOPRI [Suspect]
     Active Substance: CENOBAMATE
     Route: 065
     Dates: start: 20230126, end: 20240220
  7. XCOPRI [Suspect]
     Active Substance: CENOBAMATE
     Dosage: 300 MILLIGRAM, 1/DAY
     Route: 065
     Dates: start: 20240220, end: 20250228
  8. XCOPRI [Suspect]
     Active Substance: CENOBAMATE
     Route: 065
     Dates: start: 20250302

REACTIONS (2)
  - Hospitalisation [Recovered/Resolved]
  - Product dose omission issue [Recovered/Resolved]

NARRATIVE: CASE EVENT DATE: 20250222
